FAERS Safety Report 8249177-0 (Version None)
Quarter: 2012Q2

REPORT INFORMATION
  Report Type: 
  Country: None (occurrence: None)
  Receive Date: 20120402
  Receipt Date: 20120323
  Transmission Date: 20120825
  Serious: Yes (Other)
  Sender: FDA-Public Use
  Company Number: US-BAYER-2011-046603

PATIENT
  Age: 29 Year
  Sex: Female
  Weight: 108.84 kg

DRUGS (5)
  1. MIRENA [Suspect]
     Indication: CONTRACEPTION
     Dosage: 20 ?G, CONT
     Route: 015
     Dates: start: 20080410, end: 20110531
  2. ZYRTEC [Concomitant]
  3. SINGULAIR [Concomitant]
  4. CELEXA [Concomitant]
  5. LEXAPRO [Concomitant]

REACTIONS (6)
  - PREGNANCY WITH CONTRACEPTIVE DEVICE [None]
  - DEVICE EXPULSION [None]
  - CONVULSION [None]
  - POSTPARTUM HAEMORRHAGE [None]
  - UTERINE HAEMORRHAGE [None]
  - MENSTRUATION IRREGULAR [None]
